FAERS Safety Report 5021253-5 (Version None)
Quarter: 2006Q2

REPORT INFORMATION
  Report Type: 
  Country: None (occurrence: None)
  Receive Date: 20060608
  Receipt Date: 20050406
  Transmission Date: 20061013
  Serious: Yes (Death, Hospitalization)
  Sender: FDA-Public Use
  Company Number: US-SANOFI-SYNTHELABO-A03200500992

PATIENT
  Sex: Male

DRUGS (3)
  1. PRENATAL VITAMINS [Concomitant]
     Dosage: UNK
     Route: 064
  2. AMBIEN [Suspect]
     Indication: LABOUR INDUCTION
     Route: 064
     Dates: start: 20050404, end: 20050404
  3. AMBIEN [Suspect]
     Indication: FEELING OF RELAXATION
     Route: 064
     Dates: start: 20050404, end: 20050404

REACTIONS (5)
  - CAESAREAN SECTION [None]
  - DRUG ADMINISTRATION ERROR [None]
  - DRUG EXPOSURE DURING PREGNANCY [None]
  - FOETAL HEART RATE DECREASED [None]
  - STILLBIRTH [None]
